FAERS Safety Report 20063183 (Version 1)
Quarter: 2021Q4

REPORT INFORMATION
  Report Type: Report from Study
  Country: EG (occurrence: EG)
  Receive Date: 20211112
  Receipt Date: 20211112
  Transmission Date: 20220303
  Serious: Yes (Other)
  Sender: FDA-Public Use
  Company Number: EG-NOVARTISPH-NVSC2021EG247455

PATIENT
  Sex: Male

DRUGS (1)
  1. TASIGNA [Suspect]
     Active Substance: NILOTINIB
     Indication: Foetal exposure during pregnancy
     Dosage: MATERNAL DOSE: 2 DF, QD (MORNING)(START DATE: 6 YEARS AGO, STOP DATE: 4 YEARS AGO)
     Route: 064

REACTIONS (3)
  - Heart disease congenital [Recovered/Resolved]
  - Neonatal tachypnoea [Recovered/Resolved]
  - Foetal exposure during pregnancy [Unknown]
